FAERS Safety Report 9887564 (Version 2)
Quarter: 2014Q2

REPORT INFORMATION
  Report Type: Spontaneous
  Country: US (occurrence: US)
  Receive Date: 20140211
  Receipt Date: 20140527
  Transmission Date: 20141212
  Serious: Yes (Other)
  Sender: FDA-Public Use
  Company Number: US-TEVA-461579USA

PATIENT
  Sex: Male

DRUGS (1)
  1. PRAVASTATIN [Suspect]

REACTIONS (3)
  - Blood creatinine increased [Unknown]
  - Tremor [Unknown]
  - Burning sensation [Unknown]
